FAERS Safety Report 10062699 (Version 1)
Quarter: 2014Q2

REPORT INFORMATION
  Report Type: Spontaneous
  Country: US (occurrence: US)
  Receive Date: 20140407
  Receipt Date: 20140407
  Transmission Date: 20141212
  Serious: Yes (Other)
  Sender: FDA-Public Use
  Company Number: US-GLAXOSMITHKLINE-A1067289A

PATIENT
  Age: 48 Year
  Sex: Female

DRUGS (1)
  1. ADVAIR [Suspect]
     Indication: ASTHMA
     Dosage: 1PUFF TWICE PER DAY
     Route: 055
     Dates: start: 2010

REACTIONS (5)
  - Cholecystectomy [Recovered/Resolved]
  - Limb operation [Recovered/Resolved]
  - Gallbladder disorder [Recovered/Resolved]
  - Arthropathy [Recovering/Resolving]
  - Musculoskeletal discomfort [Recovering/Resolving]
